FAERS Safety Report 9395605 (Version 2)
Quarter: 2013Q3

REPORT INFORMATION
  Report Type: Report from Study
  Country: KR (occurrence: KR)
  Receive Date: 20130711
  Receipt Date: 20130719
  Transmission Date: 20140515
  Serious: Yes (Hospitalization)
  Sender: FDA-Public Use
  Company Number: KR-SANOFI-AVENTIS-2013SA068215

PATIENT
  Age: 63 Year
  Sex: Male
  Weight: 70 kg

DRUGS (3)
  1. OXALIPLATIN [Suspect]
     Indication: COLON CANCER
     Route: 065
     Dates: start: 20130702
  2. 5-FU [Suspect]
     Indication: COLON CANCER
     Route: 065
     Dates: start: 20130702
  3. FOLINIC ACID [Suspect]
     Indication: COLON CANCER
     Route: 065
     Dates: start: 20130702

REACTIONS (1)
  - Toxic encephalopathy [Recovered/Resolved]
